FAERS Safety Report 8875237 (Version 2)
Quarter: 2015Q1

REPORT INFORMATION
  Report Type: Report from Study
  Country: US (occurrence: US)
  Receive Date: 20121030
  Receipt Date: 20150204
  Transmission Date: 20150721
  Serious: Yes (Other)
  Sender: FDA-Public Use
  Company Number: US-ROCHE-1128861

PATIENT
  Age: 8 Year
  Sex: Male

DRUGS (3)
  1. NUTROPIN AQ [Suspect]
     Active Substance: SOMATROPIN
     Route: 058
     Dates: start: 19970815
  2. NUTROPIN AQ [Suspect]
     Active Substance: SOMATROPIN
     Indication: GROWTH HORMONE DEFICIENCY
     Route: 058
  3. NUTROPIN AQ [Suspect]
     Active Substance: SOMATROPIN
     Indication: DWARFISM
     Dosage: DOSE INCREASED
     Route: 058
     Dates: start: 199708

REACTIONS (6)
  - Upper limb fracture [Unknown]
  - Eye disorder [Unknown]
  - Drug dose omission [Unknown]
  - Headache [Unknown]
  - Skin discolouration [Unknown]
  - Fall [Unknown]

NARRATIVE: CASE EVENT DATE: 19980504
